FAERS Safety Report 4953585-0 (Version None)
Quarter: 2006Q1

REPORT INFORMATION
  Report Type: 
  Country: None (occurrence: None)
  Receive Date: 20060324
  Receipt Date: 20051213
  Transmission Date: 20060701
  Serious: Yes (Disabling, Other)
  Sender: FDA-Public Use
  Company Number: US-MERCK-0512USA02105

PATIENT
  Age: 54 Year
  Sex: Male
  Weight: 111 kg

DRUGS (1)
  1. VIOXX [Suspect]
     Indication: MENISCUS OPERATION
     Route: 048
     Dates: start: 19991001, end: 20011001

REACTIONS (3)
  - CARDIOVASCULAR DISORDER [None]
  - JOINT INJURY [None]
  - MYOCARDIAL INFARCTION [None]
